FAERS Safety Report 9819083 (Version 1)
Quarter: 2013Q4

REPORT INFORMATION
  Report Type: Spontaneous
  Country: US (occurrence: None)
  Receive Date: 20131223
  Receipt Date: 20131223
  Transmission Date: 20140711
  Serious: No
  Sender: FDA-Public Use
  Company Number: 222382

PATIENT
  Age: 70 Year
  Sex: Female

DRUGS (5)
  1. PICATO [Suspect]
     Indication: ACTINIC KERATOSIS
     Route: 061
     Dates: start: 20130608, end: 20130609
  2. SYNTHROID (LEVOTHYROXINE SODIUM) [Concomitant]
  3. CRESTOR (ROSUVASTATIN) [Concomitant]
  4. OMEPRAZOLE (OMEPRAZOLE) [Concomitant]
  5. TOPROL XL (METOPROLOL SUCCINATE) [Concomitant]

REACTIONS (2)
  - Application site vesicles [None]
  - Incorrect drug administration duration [None]
